FAERS Safety Report 4280307-1 (Version None)
Quarter: 2004Q1

REPORT INFORMATION
  Report Type: 
  Country: None (occurrence: None)
  Receive Date: 20040126
  Receipt Date: 20040112
  Transmission Date: 20041129
  Serious: Yes (Hospitalization)
  Sender: FDA-Public Use
  Company Number: 2003S1000046

PATIENT
  Age: 45 Year
  Sex: Male
  Weight: 93 kg

DRUGS (4)
  1. CUBICIN [Suspect]
     Indication: STAPHYLOCOCCAL BACTERAEMIA
     Dosage: 500 MG; QD; IV
     Route: 042
  2. VANCOMYCIN [Concomitant]
  3. GENTAMICIN [Concomitant]
  4. RIFAMPIN [Concomitant]

REACTIONS (3)
  - EMPYEMA [None]
  - OSTEOMYELITIS [None]
  - STAPHYLOCOCCAL BACTERAEMIA [None]
